FAERS Safety Report 16032595 (Version 5)
Quarter: 2019Q2

REPORT INFORMATION
  Report Type: Report from Study
  Country: IT (occurrence: IT)
  Receive Date: 20190304
  Receipt Date: 20190516
  Transmission Date: 20190711
  Serious: Yes (Hospitalization, Other)
  Sender: FDA-Public Use
  Company Number: IT-EISAI MEDICAL RESEARCH-EC-2019-052851

PATIENT
  Age: 14 Year
  Sex: Male
  Weight: 55.5 kg

DRUGS (19)
  1. MAG 2 [Concomitant]
     Active Substance: MAGNESIUM
  2. ETOPOSIDE. [Suspect]
     Active Substance: ETOPOSIDE
     Dosage: 80 MG/MQ/DIE
     Route: 041
     Dates: start: 20190208, end: 20190210
  3. DIDROGYL [Concomitant]
     Active Substance: CALCIFEDIOL
  4. CALCIFEDIOL [Concomitant]
     Active Substance: CALCIFEDIOL
  5. ETOPOSIDE. [Suspect]
     Active Substance: ETOPOSIDE
     Indication: OSTEOSARCOMA
     Dosage: 100 MG/MQ/DIE
     Route: 041
     Dates: start: 20181026, end: 2019
  6. ENALAPRIL [Concomitant]
     Active Substance: ENALAPRIL
  7. PROLACTIS START [Concomitant]
  8. RANITIDINE. [Concomitant]
     Active Substance: RANITIDINE
  9. LENVATINIB [Suspect]
     Active Substance: LENVATINIB
     Route: 048
     Dates: start: 20190405
  10. RANITIDINE. [Concomitant]
     Active Substance: RANITIDINE
  11. IFOSFAMIDE. [Suspect]
     Active Substance: IFOSFAMIDE
     Dosage: 2.4 GR/MQ/DIE
     Route: 041
     Dates: start: 20190208, end: 20190210
  12. DIFLUCAN [Concomitant]
     Active Substance: FLUCONAZOLE
  13. POTASSIUM CHLORIDE. [Concomitant]
     Active Substance: POTASSIUM CHLORIDE
  14. IFOSFAMIDE. [Suspect]
     Active Substance: IFOSFAMIDE
     Indication: OSTEOSARCOMA
     Dosage: 3.0 GR/MQ/DIE
     Route: 041
     Dates: start: 20181026, end: 2019
  15. LENVATINIB [Suspect]
     Active Substance: LENVATINIB
     Indication: OSTEOSARCOMA
     Route: 048
     Dates: start: 20181026, end: 20181206
  16. LENVATINIB [Suspect]
     Active Substance: LENVATINIB
     Route: 048
     Dates: end: 20190217
  17. LEVOTHYROXINE. [Concomitant]
     Active Substance: LEVOTHYROXINE
  18. KCL RETARD [Concomitant]
     Active Substance: POTASSIUM CHLORIDE
  19. ONDANSETRON [Concomitant]
     Active Substance: ONDANSETRON

REACTIONS (4)
  - Pancytopenia [Recovered/Resolved]
  - Neutrophil count decreased [Recovered/Resolved]
  - Renal failure [Recovered/Resolved]
  - Platelet count decreased [Recovered/Resolved]

NARRATIVE: CASE EVENT DATE: 20181105
